FAERS Safety Report 5865934-X (Version None)
Quarter: 2008Q3

REPORT INFORMATION
  Report Type: 
  Country: None (occurrence: None)
  Receive Date: 20080829
  Receipt Date: 20080822
  Transmission Date: 20090109
  Serious: Yes (Hospitalization)
  Sender: FDA-Public Use
  Company Number: GB-GENENTECH-251418

PATIENT
  Sex: Female

DRUGS (3)
  1. RSHAPO2L-TRAIL [Suspect]
     Indication: NON-SMALL CELL LUNG CANCER
     Dosage: 1400 MG, Q3W
     Route: 042
     Dates: start: 20070924
  2. BEVACIZUMAB [Suspect]
     Indication: NON-SMALL CELL LUNG CANCER
     Dosage: 1047 MG, Q3W
     Route: 042
     Dates: start: 20070924
  3. LEVOTHYROXINE SODIUM [Concomitant]
     Indication: DRUG USE FOR UNKNOWN INDICATION

REACTIONS (1)
  - TACHYCARDIA [None]
